FAERS Safety Report 6649559-4 (Version None)
Quarter: 2010Q1

REPORT INFORMATION
  Report Type: 
  Country: None (occurrence: None)
  Receive Date: 20100324
  Receipt Date: 20100324
  Transmission Date: 20100710
  Serious: Yes (Other)
  Sender: FDA-Public Use
  Company Number: None

PATIENT
  Age: 60 Year
  Sex: Female
  Weight: 102.5129 kg

DRUGS (1)
  1. ITRACONAZOLE 100MG SANDOZ [Suspect]
     Indication: ONYCHOMYCOSIS
     Dosage: ONE PILL TWICE DAILY PO
     Route: 048
     Dates: start: 20100202, end: 20100207

REACTIONS (2)
  - DRUG ERUPTION [None]
  - RASH GENERALISED [None]
